FAERS Safety Report 5628297-0 (Version None)
Quarter: 2008Q1

REPORT INFORMATION
  Report Type: 
  Country: None (occurrence: None)
  Receive Date: 20080215
  Receipt Date: 20080211
  Transmission Date: 20080703
  Serious: Yes (Other)
  Sender: FDA-Public Use
  Company Number: JP-BOEHRINGER INGELHEIM GMBH, GERMANY-2008-BP-02110RO

PATIENT
  Age: 68 Year
  Sex: Male

DRUGS (2)
  1. FUROSEMIDE [Suspect]
     Indication: OEDEMA
     Dates: start: 20060501
  2. THIAMINE [Concomitant]
     Indication: VITAMIN B1 DEFICIENCY
     Route: 048

REACTIONS (9)
  - CARDIAC FAILURE [None]
  - DRUG RESISTANCE [None]
  - GAIT DISTURBANCE [None]
  - HYPERKINETIC HEART SYNDROME [None]
  - HYPOAESTHESIA [None]
  - HYPOKALAEMIA [None]
  - PITTING OEDEMA [None]
  - POLYNEUROPATHY [None]
  - VITAMIN B1 DEFICIENCY [None]
